FAERS Safety Report 8716677 (Version 3)
Quarter: 2013Q4

REPORT INFORMATION
  Report Type: Spontaneous
  Country: US (occurrence: US)
  Receive Date: 20120810
  Receipt Date: 20131031
  Transmission Date: 20140711
  Serious: Yes (Hospitalization)
  Sender: FDA-Public Use
  Company Number: US-009507513-1208USA002844

PATIENT
  Age: 46 Year
  Sex: Female

DRUGS (3)
  1. ELAVIL (MADE BY MERCK, MARKETED BY ZENECA) [Suspect]
     Route: 048
  2. TRAZODONE HYDROCHLORIDE [Suspect]
  3. OXYCODONE [Suspect]

REACTIONS (1)
  - Brain injury [Recovered/Resolved]
